FAERS Safety Report 5864163-3 (Version None)
Quarter: 2008Q3

REPORT INFORMATION
  Report Type: 
  Country: None (occurrence: None)
  Receive Date: 20080829
  Receipt Date: 20080827
  Transmission Date: 20090109
  Serious: Yes (Hospitalization, Other)
  Sender: FDA-Public Use
  Company Number: US-CVT-080076

PATIENT

DRUGS (8)
  1. RANEXA [Suspect]
     Indication: ANGINA PECTORIS
     Dosage: 1000 MG, BID
     Route: 048
     Dates: start: 20080722, end: 20080728
  2. ALDACTONE [Concomitant]
     Indication: CARDIAC FAILURE
     Dosage: 50 MG, BID
     Route: 048
  3. COREG [Concomitant]
     Indication: CARDIAC FAILURE
     Dosage: 12.5 MG, BID
     Route: 048
  4. COREG [Concomitant]
     Indication: CORONARY ARTERY DISEASE
  5. TYLENOL (CAPLET) [Concomitant]
     Indication: PAIN
     Dosage: 650 MG, PRN
     Route: 048
  6. INSULIN                            /00030501/ [Concomitant]
     Indication: DIABETES MELLITUS
     Dosage: SLIDING SCALE
     Route: 058
  7. LASIX [Concomitant]
     Indication: CARDIAC FAILURE
     Dosage: 80 MG, BID
     Route: 048
  8. NEURONTIN [Concomitant]
     Indication: PAIN IN EXTREMITY
     Dosage: 300 MG, QD HS
     Route: 048

REACTIONS (1)
  - HEPATIC ENCEPHALOPATHY [None]
